FAERS Safety Report 12596398 (Version 1)
Quarter: 2016Q3

REPORT INFORMATION
  Report Type: Other
  Country: US (occurrence: US)
  Receive Date: 20160726
  Receipt Date: 20160726
  Transmission Date: 20161109
  Serious: Yes (Other)
  Sender: FDA-Public Use
  Company Number: US-SILARX PHARMACEUTICALS, INC-1055575

PATIENT
  Sex: Female

DRUGS (1)
  1. FLUOXETINE (FLUOXETINE HYDROCHLORIDE) LIQUID [Suspect]
     Active Substance: FLUOXETINE HYDROCHLORIDE

REACTIONS (4)
  - Throat irritation [None]
  - Tongue discomfort [None]
  - Salivary hypersecretion [None]
  - Chest pain [None]
